FAERS Safety Report 5668865-3 (Version None)
Quarter: 2008Q1

REPORT INFORMATION
  Report Type: 
  Country: None (occurrence: None)
  Receive Date: 20080317
  Receipt Date: 20080313
  Transmission Date: 20080703
  Serious: Yes (Hospitalization)
  Sender: FDA-Public Use
  Company Number: US-BRISTOL-MYERS SQUIBB COMPANY-14114441

PATIENT
  Age: 55 Year
  Sex: Female

DRUGS (3)
  1. PACLITAXEL [Suspect]
     Indication: NON-SMALL CELL LUNG CANCER
     Dates: start: 20060921
  2. CARBOPLATIN [Suspect]
     Indication: NON-SMALL CELL LUNG CANCER
     Dosage: STOPPED 04DEC07 AND RESTARTED 08DEC07
     Dates: start: 20060921
  3. BIBF 1120 [Suspect]
     Indication: NON-SMALL CELL LUNG CANCER
     Dates: start: 20060921

REACTIONS (2)
  - ANOREXIA [None]
  - DEHYDRATION [None]
